FAERS Safety Report 22247393 (Version 2)
Quarter: 2023Q2

REPORT INFORMATION
  Report Type: Spontaneous
  Country: JP (occurrence: JP)
  Receive Date: 20230425
  Receipt Date: 20230601
  Transmission Date: 20230722
  Serious: Yes (Death, Hospitalization, Other)
  Sender: FDA-Public Use
  Company Number: JP-KOREA IPSEN Pharma-2023-09205

PATIENT
  Age: 62 Year
  Sex: Female

DRUGS (3)
  1. LANREOTIDE ACETATE [Suspect]
     Active Substance: LANREOTIDE ACETATE
     Indication: Neuroendocrine tumour
     Route: 065
     Dates: start: 202004
  2. EVEROLIMUS [Concomitant]
     Active Substance: EVEROLIMUS
     Dates: start: 201903
  3. EVEROLIMUS [Concomitant]
     Active Substance: EVEROLIMUS

REACTIONS (5)
  - Death [Fatal]
  - Adverse event [Unknown]
  - Abdominal pain [Unknown]
  - Depressed level of consciousness [Unknown]
  - Abdominal distension [Unknown]

NARRATIVE: CASE EVENT DATE: 20220523
